FAERS Safety Report 5724667-0 (Version None)
Quarter: 2008Q2

REPORT INFORMATION
  Report Type: 
  Country: None (occurrence: None)
  Receive Date: 20080430
  Receipt Date: 20080430
  Transmission Date: 20081010
  Serious: Yes (Life-Threatening, Hospitalization)
  Sender: FDA-Public Use
  Company Number: None

PATIENT
  Sex: Female
  Weight: 72.5755 kg

DRUGS (1)
  1. DIGITEK 250 MCG UNKNOWN [Suspect]
     Indication: HEART RATE IRREGULAR
     Dosage: 1/2 1 DAILY PO
     Route: 048
     Dates: start: 20030305, end: 20030418

REACTIONS (1)
  - HEART RATE DECREASED [None]
